FAERS Safety Report 4827031-1 (Version None)
Quarter: 2005Q4

REPORT INFORMATION
  Report Type: 
  Country: None (occurrence: None)
  Receive Date: 20051014
  Receipt Date: 20050829
  Transmission Date: 20060501
  Serious: No
  Sender: FDA-Public Use
  Company Number: 2005SP000642

PATIENT
  Age: 66 Year
  Sex: Female
  Weight: 83.9154 kg

DRUGS (10)
  1. LUNESTA [Suspect]
     Indication: INSOMNIA
     Dosage: 2 MG; HS; ORAL; 5 MG; HS; ORAL
     Route: 048
     Dates: start: 20050505, end: 20050505
  2. LUNESTA [Suspect]
     Indication: INSOMNIA
     Dosage: 2 MG; HS; ORAL; 5 MG; HS; ORAL
     Route: 048
     Dates: start: 20050506, end: 20050508
  3. LUNESTA [Suspect]
  4. AMBIEN [Concomitant]
  5. ATIVAN [Concomitant]
  6. ZOLOFT [Concomitant]
  7. ACTIVELLA [Concomitant]
  8. LISINOPRIL [Concomitant]
  9. SINGULAIR [Concomitant]
  10. SYNTHROID [Concomitant]

REACTIONS (3)
  - DRUG INEFFECTIVE [None]
  - DYSGEUSIA [None]
  - INSOMNIA [None]
